FAERS Safety Report 21922038 (Version 1)
Quarter: 2023Q1

REPORT INFORMATION
  Report Type: Spontaneous
  Country: US (occurrence: US)
  Receive Date: 20230128
  Receipt Date: 20230128
  Transmission Date: 20230418
  Serious: No
  Sender: FDA-Public Use
  Company Number: US-ELI_LILLY_AND_COMPANY-US202301009464

PATIENT
  Age: 11 Year
  Sex: Male
  Weight: 40 kg

DRUGS (2)
  1. TALTZ [Suspect]
     Active Substance: IXEKIZUMAB
     Indication: Psoriasis
     Dosage: 80 MG, OTHER (LOADING DOSE)
     Route: 065
     Dates: start: 20221221
  2. TALTZ [Suspect]
     Active Substance: IXEKIZUMAB
     Dosage: 40 UNK, OTHER (EVERY FOUR WEEKS)
     Route: 065

REACTIONS (1)
  - Extra dose administered [Recovered/Resolved]
